FAERS Safety Report 10067364 (Version 1)
Quarter: 2014Q2

REPORT INFORMATION
  Report Type: Spontaneous
  Country: GB (occurrence: GB)
  Receive Date: 20140409
  Receipt Date: 20140409
  Transmission Date: 20141212
  Serious: Yes (Other)
  Sender: FDA-Public Use
  Company Number: GB-UCBSA-116714

PATIENT
  Age: 60 Year
  Sex: Male

DRUGS (1)
  1. CERTOLIZUMAB [Suspect]
     Indication: RHEUMATOID ARTHRITIS
     Route: 058
     Dates: start: 20140303, end: 20140303

REACTIONS (5)
  - Hypersensitivity [Recovered/Resolved]
  - Swelling face [Recovered/Resolved]
  - Pharyngeal oedema [Recovered/Resolved]
  - Rash [Recovered/Resolved]
  - Rhinorrhoea [Recovered/Resolved]
